FAERS Safety Report 13514816 (Version 1)
Quarter: 2017Q2

REPORT INFORMATION
  Report Type: Spontaneous
  Country: ES (occurrence: ES)
  Receive Date: 20170504
  Receipt Date: 20170504
  Transmission Date: 20170830
  Serious: Yes (Death, Other)
  Sender: FDA-Public Use
  Company Number: ES-VIIV HEALTHCARE LIMITED-ES2017063479

PATIENT
  Age: 49 Year
  Sex: Male
  Weight: 88 kg

DRUGS (6)
  1. TRIUMEQ [Suspect]
     Active Substance: ABACAVIR SULFATE\DOLUTEGRAVIR SODIUM\LAMIVUDINE
     Indication: HIV INFECTION
     Dosage: 1 DF, QD, ONE TABLET PER DAY
     Route: 048
     Dates: start: 20170202, end: 20170408
  2. MASTICAL D [Concomitant]
     Indication: PROPHYLAXIS
     Dosage: 1 DF, QD
     Route: 065
     Dates: start: 20170310
  3. ALPRAZOLAM. [Concomitant]
     Active Substance: ALPRAZOLAM
     Indication: ANXIETY
     Dosage: 1 DF, QD
     Route: 065
     Dates: start: 20170406
  4. PREDNISONE. [Concomitant]
     Active Substance: PREDNISONE
     Indication: PROGRESSIVE MULTIFOCAL LEUKOENCEPHALOPATHY
     Dosage: 90 MG/24 HOURS
     Route: 065
     Dates: start: 20170302
  5. SEPTRIM FORTE [Concomitant]
     Indication: PROPHYLAXIS
     Dosage: ONE TABLET THREE TIMES/ WEEK
     Route: 065
     Dates: start: 20161031
  6. ALPRAZOLAM. [Concomitant]
     Active Substance: ALPRAZOLAM
     Indication: INITIAL INSOMNIA

REACTIONS (1)
  - Completed suicide [Fatal]

NARRATIVE: CASE EVENT DATE: 20170408
